FAERS Safety Report 9582043 (Version 2)
Quarter: 2013Q4

REPORT INFORMATION
  Report Type: Spontaneous
  Country: US (occurrence: US)
  Receive Date: 20131002
  Receipt Date: 20131018
  Transmission Date: 20140711
  Serious: Yes (Hospitalization)
  Sender: FDA-Public Use
  Company Number: US-BAXTER-2013BAX037783

PATIENT
  Age: 63 Year
  Sex: Male

DRUGS (4)
  1. DIANEAL LOW CALCIUM [Suspect]
     Indication: PERITONEAL DIALYSIS
     Dosage: 21000 ML TOTAL FILL VOLUME
     Route: 033
     Dates: start: 20120206
  2. DIANEAL LOW CALCIUM [Suspect]
     Indication: PERITONEAL DIALYSIS
     Dosage: 21000 ML TOTAL FILL VOLUMES
     Route: 033
     Dates: start: 20120206
  3. DIANEAL LOW CALCIUM (ULTRABAG) [Suspect]
     Indication: PERITONEAL DIALYSIS
     Dosage: 21000 ML TOTAL FILL VOLUME
     Route: 033
     Dates: start: 20120206
  4. DIANEAL LOW CALCIUM (ULTRABAG) [Suspect]
     Indication: PERITONEAL DIALYSIS
     Dosage: 21000 ML TOTAL FILL VOLUME
     Route: 033
     Dates: start: 20120206

REACTIONS (1)
  - Haemoglobin decreased [Recovered/Resolved]
